FAERS Safety Report 9006689 (Version 3)
Quarter: 2015Q1

REPORT INFORMATION
  Report Type: Spontaneous
  Country: US (occurrence: US)
  Receive Date: 20130110
  Receipt Date: 20150224
  Transmission Date: 20150721
  Serious: Yes (Hospitalization, Other)
  Sender: FDA-Public Use
  Company Number: US-BAYER-2013-003111

PATIENT
  Age: 21 Year
  Sex: Female
  Weight: 95.24 kg

DRUGS (3)
  1. YAZ [Suspect]
     Active Substance: DROSPIRENONE\ETHINYL ESTRADIOL
     Dosage: UNK
     Dates: start: 2006, end: 2009
  2. PERCOCET [Concomitant]
     Active Substance: ACETAMINOPHEN\OXYCODONE HYDROCHLORIDE
     Indication: PAIN
  3. DEMEROL [Concomitant]
     Active Substance: MEPERIDINE HYDROCHLORIDE
     Dosage: 50 MG, UNK

REACTIONS (7)
  - Injury [None]
  - Cholecystitis chronic [None]
  - Cholecystectomy [None]
  - Deep vein thrombosis [None]
  - Anxiety [None]
  - Pain [None]
  - Pulmonary embolism [None]

NARRATIVE: CASE EVENT DATE: 200811
